FAERS Safety Report 8901410 (Version 1)
Quarter: 2012Q4

REPORT INFORMATION
  Report Type: Report from Study
  Country: AU (occurrence: AU)
  Receive Date: 20121108
  Receipt Date: 20121108
  Transmission Date: 20130627
  Serious: Yes (Other)
  Sender: FDA-Public Use
  Company Number: AU-VERTEX PHARMACEUTICAL INC.-2012-024268

PATIENT
  Sex: Male

DRUGS (3)
  1. INCIVO [Suspect]
     Indication: HEPATITIS C
     Dosage: Dosage Form: Tablet
     Route: 048
     Dates: start: 20120810
  2. RIBAVIRIN [Concomitant]
     Indication: HEPATITIS C
     Dosage: 600 mg, bid
     Dates: start: 20120810
  3. INTERFERON [Concomitant]
     Indication: HEPATITIS C
     Dosage: 180 ?g, qw
     Dates: start: 20120810

REACTIONS (2)
  - Neuropathy peripheral [Unknown]
  - Skin fissures [Unknown]
